FAERS Safety Report 11713336 (Version 1)
Quarter: 2015Q4

REPORT INFORMATION
  Report Type: Report from Study
  Country: CO (occurrence: CO)
  Receive Date: 20151109
  Receipt Date: 20151109
  Transmission Date: 20160304
  Serious: Yes (Hospitalization)
  Sender: FDA-Public Use
  Company Number: CO-ABBVIE-15K-036-1496629-00

PATIENT
  Age: 87 Year
  Sex: Male
  Weight: 86 kg

DRUGS (4)
  1. ATORVASTATIN [Concomitant]
     Active Substance: ATORVASTATIN
     Indication: PRODUCT USED FOR UNKNOWN INDICATION
  2. HUMIRA [Suspect]
     Active Substance: ADALIMUMAB
     Indication: PSORIASIS
     Route: 058
     Dates: start: 20081107, end: 20150901
  3. LOSARTAN. [Concomitant]
     Active Substance: LOSARTAN
     Indication: PRODUCT USED FOR UNKNOWN INDICATION
  4. VERAPAMIL [Concomitant]
     Active Substance: VERAPAMIL HYDROCHLORIDE
     Indication: PRODUCT USED FOR UNKNOWN INDICATION

REACTIONS (10)
  - Vertigo [Recovering/Resolving]
  - Dysarthria [Recovering/Resolving]
  - Cerebral ischaemia [Recovering/Resolving]
  - Malaise [Recovering/Resolving]
  - Carotid artery occlusion [Recovering/Resolving]
  - Headache [Recovering/Resolving]
  - Carotid arteriosclerosis [Recovering/Resolving]
  - Salivary hypersecretion [Recovering/Resolving]
  - Balance disorder [Recovering/Resolving]
  - Hemiparesis [Recovering/Resolving]

NARRATIVE: CASE EVENT DATE: 20151031
